FAERS Safety Report 6842611-X (Version None)
Quarter: 2010Q3

REPORT INFORMATION
  Report Type: 
  Country: None (occurrence: None)
  Receive Date: 20100714
  Receipt Date: 20070727
  Transmission Date: 20110219
  Serious: No
  Sender: FDA-Public Use
  Company Number: US-PFIZER INC-2007064017

PATIENT
  Sex: Female
  Weight: 52.272 kg

DRUGS (7)
  1. CHANTIX [Suspect]
     Indication: SMOKING CESSATION THERAPY
     Route: 048
     Dates: start: 20070717
  2. PERCOCET [Concomitant]
  3. SKELAXIN [Concomitant]
  4. LISINOPRIL [Concomitant]
  5. TRAZODONE HYDROCHLORIDE [Concomitant]
  6. HYDROCHLOROTHIAZIDE [Concomitant]
  7. IBUPROFEN [Concomitant]

REACTIONS (4)
  - DEPRESSION [None]
  - FATIGUE [None]
  - MOOD ALTERED [None]
  - NAUSEA [None]
